FAERS Safety Report 23852415 (Version 1)
Quarter: 2024Q2

REPORT INFORMATION
  Report Type: Spontaneous
  Country: ES (occurrence: ES)
  Receive Date: 20240514
  Receipt Date: 20240514
  Transmission Date: 20240716
  Serious: Yes (Other)
  Sender: FDA-Public Use
  Company Number: ES-MYLANLABS-2024M1042736

PATIENT
  Age: 57 Year
  Sex: Male

DRUGS (12)
  1. ISOTRETINOIN [Suspect]
     Active Substance: ISOTRETINOIN
     Indication: Pemphigus
     Dosage: 20 MILLIGRAM, QD
     Route: 065
  2. ISOTRETINOIN [Suspect]
     Active Substance: ISOTRETINOIN
     Indication: Subcorneal pustular dermatosis
  3. PREDNISONE [Concomitant]
     Active Substance: PREDNISONE
     Indication: Pemphigus
     Dosage: 1 MILLIGRAM/KILOGRAM, QD (1 MG/KG/BODY WEIGHT)
     Route: 065
  4. PREDNISONE [Concomitant]
     Active Substance: PREDNISONE
     Indication: Subcorneal pustular dermatosis
  5. METHOTREXATE [Concomitant]
     Active Substance: METHOTREXATE
     Indication: Pemphigus
     Dosage: 15 MILLIGRAM, QW
     Route: 065
  6. METHOTREXATE [Concomitant]
     Active Substance: METHOTREXATE
     Indication: Subcorneal pustular dermatosis
  7. ACITRETIN [Concomitant]
     Active Substance: ACITRETIN
     Indication: Pemphigus
     Dosage: 10 MILLIGRAM, QD
     Route: 065
  8. ACITRETIN [Concomitant]
     Active Substance: ACITRETIN
     Indication: Subcorneal pustular dermatosis
  9. MYCOPHENOLATE MOFETIL [Concomitant]
     Active Substance: MYCOPHENOLATE MOFETIL
     Indication: Pemphigus
     Dosage: 360 MILLIGRAM, QD
     Route: 065
  10. MYCOPHENOLATE MOFETIL [Concomitant]
     Active Substance: MYCOPHENOLATE MOFETIL
     Indication: Subcorneal pustular dermatosis
  11. RITUXIMAB [Concomitant]
     Active Substance: RITUXIMAB
     Indication: Pemphigus
     Dosage: 1 GRAM, Q2W (1 G AT TWO WEEK INTERVALS, 2 INFUSIONS)
     Route: 065
  12. RITUXIMAB [Concomitant]
     Active Substance: RITUXIMAB
     Indication: Subcorneal pustular dermatosis

REACTIONS (2)
  - Drug ineffective for unapproved indication [Unknown]
  - Off label use [Unknown]
